FAERS Safety Report 14411027 (Version 1)
Quarter: 2018Q1

REPORT INFORMATION
  Report Type: Spontaneous
  Country: US (occurrence: US)
  Receive Date: 20180117
  Receipt Date: 20180117
  Transmission Date: 20180509
  Serious: No
  Sender: FDA-Public Use
  Company Number: None

PATIENT
  Age: 70 Year
  Sex: Female

DRUGS (1)
  1. TACROLIMUS CAP 1MG ACCORD HEALTHCARE [Suspect]
     Active Substance: TACROLIMUS
     Indication: AMNESTIC DISORDER

REACTIONS (3)
  - Therapy change [None]
  - White blood cell count decreased [None]
  - Cytomegalovirus infection [None]

NARRATIVE: CASE EVENT DATE: 20180116
